FAERS Safety Report 7132009-1 (Version None)
Quarter: 2010Q4

REPORT INFORMATION
  Report Type: 
  Country: None (occurrence: None)
  Receive Date: 20101130
  Receipt Date: 20101130
  Transmission Date: 20110411
  Serious: Yes (Other)
  Sender: FDA-Public Use
  Company Number: None

PATIENT
  Age: 24 Year
  Sex: Male
  Weight: 65.7716 kg

DRUGS (5)
  1. CETIRIZINE HYDROCHLORIDE [Suspect]
     Indication: RHINITIS ALLERGIC
     Dosage: 10 MG DAILY PO
     Route: 048
     Dates: start: 20071122, end: 20101122
  2. MULTI-VITAMIN [Concomitant]
  3. VITAMIN D3 [Concomitant]
  4. ZOLPIDEM [Concomitant]
  5. ZOLPIDEM [Concomitant]

REACTIONS (3)
  - MALAISE [None]
  - URTICARIA [None]
  - WITHDRAWAL SYNDROME [None]
